FAERS Safety Report 17870160 (Version 1)
Quarter: 2020Q2

REPORT INFORMATION
  Report Type: Spontaneous
  Country: US (occurrence: US)
  Receive Date: 20200605
  Receipt Date: 20200605
  Transmission Date: 20200714
  Serious: Yes (Life-Threatening, Hospitalization)
  Sender: FDA-Public Use
  Company Number: None

PATIENT
  Age: 44 Year
  Sex: Female
  Weight: 80.2 kg

DRUGS (9)
  1. TOBRAMYCIN/DEXAMETHESONE EYE DROPS [Concomitant]
     Dates: start: 20200217
  2. MOXIFLOXACIN EYE DROPS [Concomitant]
     Dates: start: 20200217
  3. OSELTAMIVIR [Suspect]
     Active Substance: OSELTAMIVIR
     Indication: INFLUENZA
     Route: 048
     Dates: start: 20200209, end: 20200210
  4. BENADRYL, LIDOCAINE, MAALOX MOUTH WASH [Concomitant]
     Dates: start: 20200217, end: 20200221
  5. CYCLOSPORINE EYE DROPS [Concomitant]
     Dates: start: 20200217
  6. CYCLOSPORINE 2MG/KG IV Q12H [Concomitant]
     Dates: start: 20200217, end: 20200221
  7. DEXAMETHASONE 10MG IM INJ X1 [Concomitant]
     Dates: start: 20200212, end: 20200212
  8. METHYLPREDNISOLONE 125MG IV X1 [Concomitant]
     Dates: start: 20200217, end: 20200217
  9. DEXAMETHASONE OPHTHALMIC SOLUTION [Concomitant]
     Dates: start: 20200217

REACTIONS (10)
  - Stomatitis [None]
  - Swollen tongue [None]
  - Hypersensitivity [None]
  - Pain [None]
  - Eye pruritus [None]
  - Stevens-Johnson syndrome [None]
  - Throat irritation [None]
  - Epigastric discomfort [None]
  - Dyspnoea [None]
  - Vaginal ulceration [None]

NARRATIVE: CASE EVENT DATE: 20200217
